FAERS Safety Report 6701120-9 (Version None)
Quarter: 2010Q2

REPORT INFORMATION
  Report Type: 
  Country: None (occurrence: None)
  Receive Date: 20100428
  Receipt Date: 20100428
  Transmission Date: 20101027
  Serious: Yes (Other)
  Sender: FDA-Public Use
  Company Number: None

PATIENT
  Age: 64 Year
  Sex: Female
  Weight: 64.4108 kg

DRUGS (1)
  1. ARIMIDEX [Suspect]
     Indication: BREAST CANCER STAGE II
     Dosage: ONE DAILY PO
     Route: 048
     Dates: start: 20090820, end: 20100424

REACTIONS (8)
  - BONE PAIN [None]
  - CARPAL TUNNEL SYNDROME [None]
  - DEPRESSION [None]
  - GAIT DISTURBANCE [None]
  - HOT FLUSH [None]
  - NIGHT SWEATS [None]
  - PAIN IN EXTREMITY [None]
  - SCREAMING [None]
